FAERS Safety Report 14169938 (Version 1)
Quarter: 2017Q4

REPORT INFORMATION
  Report Type: Spontaneous
  Country: US (occurrence: US)
  Receive Date: 20171108
  Receipt Date: 20171108
  Transmission Date: 20180321
  Serious: No
  Sender: FDA-Public Use
  Company Number: US-MISSION PHARMACAL COMPANY-2033529

PATIENT
  Age: 31 Year
  Sex: Male

DRUGS (1)
  1. THIOLA [Suspect]
     Active Substance: TIOPRONIN
     Indication: CYSTINURIA
     Route: 065
     Dates: start: 20151231

REACTIONS (5)
  - Erythema [Unknown]
  - Rash [Unknown]
  - Pain of skin [Unknown]
  - Pruritus [Unknown]
  - Hyperaesthesia [Unknown]
